FAERS Safety Report 26153868 (Version 1)
Quarter: 2025Q4

REPORT INFORMATION
  Report Type: Spontaneous
  Country: CN (occurrence: CN)
  Receive Date: 20251214
  Receipt Date: 20251214
  Transmission Date: 20260118
  Serious: Yes (Other)
  Sender: BAXTER
  Company Number: None

PATIENT
  Age: 38 Year
  Sex: Female
  Weight: 53 kg

DRUGS (4)
  1. CYCLOPHOSPHAMIDE [Suspect]
     Active Substance: CYCLOPHOSPHAMIDE
     Indication: Breast cancer female
     Dosage: 0.8 G, QD (ROUTE: INTRAPUMP/MICROPUMP INJECTION)
     Route: 065
     Dates: start: 20251201, end: 20251201
  2. EPIRUBICIN HYDROCHLORIDE [Suspect]
     Active Substance: EPIRUBICIN HYDROCHLORIDE
     Indication: Breast cancer female
     Dosage: 135 MG, QD
     Route: 041
     Dates: start: 20251201, end: 20251201
  3. SODIUM CHLORIDE [Suspect]
     Active Substance: SODIUM CHLORIDE
     Indication: Medication dilution
     Dosage: 0.9% 50 ML, QD ((INTRAPUMP INJECTION) (CYCLOPHOSPHAMIDE + 0.9% SODIUM CHLORIDE)
     Route: 065
     Dates: start: 20251201, end: 20251201
  4. SODIUM CHLORIDE [Suspect]
     Active Substance: SODIUM CHLORIDE
     Dosage: 0.9% 150 ML, QD  (EPIRUBICIN HYDROCHLORIDE + 0.9% SODIUM CHLORIDE)
     Route: 041
     Dates: start: 20251201, end: 20251201

REACTIONS (13)
  - Depressed level of consciousness [Recovering/Resolving]
  - Hypokalaemia [Recovering/Resolving]
  - Hypochloraemia [Recovering/Resolving]
  - Urinary incontinence [Recovering/Resolving]
  - Unresponsive to stimuli [Recovering/Resolving]
  - Restlessness [Recovering/Resolving]
  - Urine output increased [Recovering/Resolving]
  - Enuresis [Recovering/Resolving]
  - Haematemesis [Recovering/Resolving]
  - Nausea [Recovering/Resolving]
  - Vomiting [Recovering/Resolving]
  - Hyponatraemia [Recovering/Resolving]
  - Pyrexia [Recovered/Resolved]

NARRATIVE: CASE EVENT DATE: 20251202
